FAERS Safety Report 4686819-0 (Version None)
Quarter: 2005Q2

REPORT INFORMATION
  Report Type: 
  Country: None (occurrence: None)
  Receive Date: 20050609
  Receipt Date: 20050530
  Transmission Date: 20051028
  Serious: Yes (Disabling, Congenital Anomaly)
  Sender: FDA-Public Use
  Company Number: NL-ABBOTT-05P-114-0302095-00

PATIENT
  Sex: Male

DRUGS (1)
  1. DEPAKENE [Suspect]
     Indication: DRUG EXPOSURE DURING PREGNANCY

REACTIONS (3)
  - AUTISM SPECTRUM DISORDER [None]
  - FOETAL VALPROATE SYNDROME [None]
  - MENTAL RETARDATION SEVERITY UNSPECIFIED [None]
